FAERS Safety Report 4618007-8 (Version None)
Quarter: 2005Q1

REPORT INFORMATION
  Report Type: 
  Country: None (occurrence: None)
  Receive Date: 20050322
  Receipt Date: 20050317
  Transmission Date: 20050727
  Serious: Yes (Life-Threatening, Hospitalization, Disabling, Other)
  Sender: FDA-Public Use
  Company Number: 2004008287

PATIENT
  Age: 50 Year
  Sex: Male

DRUGS (2)
  1. TAHOR (ATORVASTATIN) [Suspect]
     Indication: HYPERCHOLESTEROLAEMIA
     Dates: start: 20030501, end: 20040101
  2. ATENOLOL [Concomitant]

REACTIONS (3)
  - CONDITION AGGRAVATED [None]
  - HEART AND LUNG TRANSPLANT [None]
  - INTERSTITIAL LUNG DISEASE [None]
